FAERS Safety Report 10799079 (Version 2)
Quarter: 2015Q1

REPORT INFORMATION
  Report Type: Spontaneous
  Country: US (occurrence: US)
  Receive Date: 20150216
  Receipt Date: 20150216
  Transmission Date: 20150721
  Serious: No
  Sender: FDA-Public Use
  Company Number: US-ALLERGAN-1405169US

PATIENT
  Age: 68 Year
  Sex: Female

DRUGS (2)
  1. RESTASIS [Suspect]
     Active Substance: CYCLOSPORINE
     Indication: CORNEAL IRRITATION
     Dosage: 2 GTT, BID
     Route: 047
  2. CIPROFLOXACIN EYE DROPS [Suspect]
     Active Substance: CIPROFLOXACIN
     Dosage: UNK

REACTIONS (2)
  - Eye irritation [Recovered/Resolved]
  - Vision blurred [Unknown]
